FAERS Safety Report 8349912 (Version 2)
Quarter: 2012Q4

REPORT INFORMATION
  Report Type: 
  Country: US (occurrence: US)
  Receive Date: 20120123
  Receipt Date: 20121130
  Transmission Date: 20130627
  Serious: Yes (Hospitalization)
  Sender: FDA-Public Use
  Company Number: US-ASTRAZENECA-2010SE50304

PATIENT
  Age: 85 Year
  Sex: Female

DRUGS (2)
  1. NEXIUM [Suspect]
     Route: 048
  2. PULMICORT FLEXHALER [Suspect]
     Indication: ASTHMA
     Route: 055
     Dates: start: 20121120

REACTIONS (16)
  - Upper limb fracture [Unknown]
  - Fall [Unknown]
  - Back disorder [Unknown]
  - Chest discomfort [Unknown]
  - Osteoporosis [Unknown]
  - Hiatus hernia [Unknown]
  - Drug intolerance [Unknown]
  - Intervertebral disc degeneration [Unknown]
  - Wheezing [Unknown]
  - Chest pain [Unknown]
  - Joint swelling [Unknown]
  - Dyspnoea [Unknown]
  - Asthenia [Unknown]
  - Anxiety [Unknown]
  - Stress [Unknown]
  - Malaise [Unknown]
